FAERS Safety Report 7325657-7 (Version None)
Quarter: 2011Q1

REPORT INFORMATION
  Report Type: 
  Country: None (occurrence: None)
  Receive Date: 20110302
  Receipt Date: 20110225
  Transmission Date: 20110831
  Serious: Yes (Other)
  Sender: FDA-Public Use
  Company Number: US-PFIZER INC-2011042004

PATIENT
  Sex: Male
  Weight: 75.737 kg

DRUGS (6)
  1. SERTRALINE [Concomitant]
     Indication: DEPRESSION
     Dosage: 50 MG, 1X/DAY
     Route: 048
  2. CHANTIX [Suspect]
     Dosage: 1 MG, UNK
     Route: 048
  3. AMITRIPTYLINE [Concomitant]
     Indication: SLEEP DISORDER
     Dosage: 25 MG, 2X/DAY
     Route: 048
  4. CHANTIX [Suspect]
     Indication: SMOKING CESSATION THERAPY
     Dosage: 0.5 MG DAILY
     Route: 048
     Dates: start: 20101201
  5. HYDROCODONE [Concomitant]
     Indication: BACK PAIN
     Dosage: 750 MG, EVERY 4 HRS
     Route: 048
  6. LISINOPRIL AND HYDROCHLOROTHIAZIDE [Concomitant]
     Indication: HYPERTENSION
     Dosage: 20/12.5 MG DAILY
     Route: 048

REACTIONS (2)
  - DRUG INEFFECTIVE [None]
  - DRUG SCREEN POSITIVE [None]
